FAERS Safety Report 20755041 (Version 1)
Quarter: 2022Q2

REPORT INFORMATION
  Report Type: Spontaneous
  Country: CA (occurrence: CA)
  Receive Date: 20220427
  Receipt Date: 20220427
  Transmission Date: 20220721
  Serious: Yes (Other)
  Sender: FDA-Public Use
  Company Number: CA-JNJFOC-20220445432

PATIENT
  Age: 50 Year
  Sex: Female
  Weight: 66 kg

DRUGS (6)
  1. REMICADE [Suspect]
     Active Substance: INFLIXIMAB
     Indication: Colitis ulcerative
     Route: 042
  2. REMICADE [Suspect]
     Active Substance: INFLIXIMAB
     Indication: Ankylosing spondylitis
  3. ROBAXACET [Concomitant]
     Active Substance: ACETAMINOPHEN\METHOCARBAMOL
     Indication: Pain
  4. SULFASALAZINE [Concomitant]
     Active Substance: SULFASALAZINE
  5. SULFASALAZINE [Concomitant]
     Active Substance: SULFASALAZINE
  6. VEDOLIZUMAB [Concomitant]
     Active Substance: VEDOLIZUMAB
     Indication: Ankylosing spondylitis

REACTIONS (4)
  - Tooth infection [Not Recovered/Not Resolved]
  - Off label use [Not Recovered/Not Resolved]
  - Contraindicated product prescribed [Not Recovered/Not Resolved]
  - Product use issue [Not Recovered/Not Resolved]
